FAERS Safety Report 4337558-7 (Version None)
Quarter: 2004Q2

REPORT INFORMATION
  Report Type: 
  Country: None (occurrence: None)
  Receive Date: 20040412
  Receipt Date: 20040412
  Transmission Date: 20050107
  Serious: Yes (Disabling, Other)
  Sender: FDA-Public Use
  Company Number: None

PATIENT
  Age: 34 Year
  Sex: Female
  Weight: 52.1637 kg

DRUGS (3)
  1. PAXIL CR [Suspect]
     Indication: DEPRESSION
     Dosage: 12.5 ONCE DAILY ORAL
     Route: 048
  2. PAXIL CR [Suspect]
     Indication: FATIGUE
     Dosage: 12.5 ONCE DAILY ORAL
     Route: 048
  3. PAXIL CR [Suspect]
     Indication: PHOBIA
     Dosage: 12.5 ONCE DAILY ORAL
     Route: 048

REACTIONS (10)
  - ANGER [None]
  - DRUG WITHDRAWAL SYNDROME [None]
  - HYPERACUSIS [None]
  - HYPERSENSITIVITY [None]
  - MOOD SWINGS [None]
  - MUSCLE CRAMP [None]
  - NAUSEA [None]
  - PANIC DISORDER [None]
  - PAROSMIA [None]
  - PSYCHOTIC DISORDER [None]
